FAERS Safety Report 7577760-4 (Version None)
Quarter: 2011Q2

REPORT INFORMATION
  Report Type: 
  Country: None (occurrence: None)
  Receive Date: 20110628
  Receipt Date: 20110617
  Transmission Date: 20111010
  Serious: Yes (Other)
  Sender: FDA-Public Use
  Company Number: FR-VALEANT-2011VX000050

PATIENT
  Age: 23 Year
  Sex: Male
  Weight: 70 kg

DRUGS (3)
  1. PROSTIGMIN BROMIDE [Suspect]
     Route: 042
     Dates: start: 20100208, end: 20100208
  2. PROSTIGMIN BROMIDE [Suspect]
     Route: 065
     Dates: start: 20100208, end: 20100208
  3. PHENYLEPHRINE HCL [Suspect]
     Route: 042
     Dates: start: 20100208, end: 20100208

REACTIONS (9)
  - TACHYCARDIA [None]
  - DRUG LABEL CONFUSION [None]
  - SUPERINFECTION [None]
  - OXYGEN SATURATION DECREASED [None]
  - PILONIDAL CYST [None]
  - BLOOD PRESSURE DECREASED [None]
  - HYPERTENSION [None]
  - INCREASED BRONCHIAL SECRETION [None]
  - INCORRECT ROUTE OF DRUG ADMINISTRATION [None]
